FAERS Safety Report 23523398 (Version 1)
Quarter: 2024Q1

REPORT INFORMATION
  Report Type: Spontaneous
  Country: GB (occurrence: GB)
  Receive Date: 20240214
  Receipt Date: 20240214
  Transmission Date: 20240409
  Serious: Yes (Other)
  Sender: FDA-Public Use
  Company Number: GB-SUN PHARMACEUTICAL INDUSTRIES LTD-2024R1-431194

PATIENT
  Age: 58 Year
  Sex: Male

DRUGS (8)
  1. LOSARTAN [Suspect]
     Active Substance: LOSARTAN
     Indication: Diabetic nephropathy
     Dosage: UNK
     Route: 065
  2. SIMVASTATIN [Suspect]
     Active Substance: SIMVASTATIN
     Indication: Diabetic nephropathy
     Dosage: UNK
     Route: 065
  3. ALFACALCIDOL [Suspect]
     Active Substance: ALFACALCIDOL
     Indication: Diabetic nephropathy
     Dosage: UNK
     Route: 065
  4. BUMETANIDE [Suspect]
     Active Substance: BUMETANIDE
     Indication: Diabetic nephropathy
     Dosage: UNK
     Route: 065
     Dates: end: 202101
  5. CLOPIDOGREL [Suspect]
     Active Substance: CLOPIDOGREL BISULFATE
     Indication: Diabetic nephropathy
     Dosage: UNK
     Route: 065
  6. BISOPROLOL [Suspect]
     Active Substance: BISOPROLOL\BISOPROLOL FUMARATE
     Indication: Diabetic nephropathy
     Dosage: UNK
     Route: 065
     Dates: end: 202101
  7. ATEZOLIZUMAB [Concomitant]
     Active Substance: ATEZOLIZUMAB
     Indication: Haemodialysis
     Dosage: 1200 MILLIGRAM
     Route: 065
  8. BEVACIZUMAB [Concomitant]
     Active Substance: BEVACIZUMAB
     Indication: Haemodialysis
     Dosage: 1200 MILLIGRAM(EVERY 3 WEEKS)
     Route: 065

REACTIONS (1)
  - Dialysis hypotension [Unknown]
